FAERS Safety Report 12967416 (Version 2)
Quarter: 2017Q1

REPORT INFORMATION
  Report Type: Spontaneous
  Country: US (occurrence: US)
  Receive Date: 20161123
  Receipt Date: 20170111
  Transmission Date: 20170428
  Serious: No
  Sender: FDA-Public Use
  Company Number: US-INCYTE CORPORATION-2016IN007352

PATIENT
  Age: 68 Year
  Sex: Female

DRUGS (2)
  1. JAKAFI [Suspect]
     Active Substance: RUXOLITINIB
     Dosage: 10 MG AM, 10 MG PM
     Route: 048
     Dates: start: 20160526
  2. JAKAFI [Suspect]
     Active Substance: RUXOLITINIB
     Indication: MYELOFIBROSIS
     Dosage: 5 MG - 10 MG AM / 5 MG PM, 2 TABLETS AM / 1 PM
     Route: 048
     Dates: start: 20160526

REACTIONS (4)
  - Aphthous ulcer [Unknown]
  - Dysphonia [Unknown]
  - Fatigue [Unknown]
  - Oral herpes [Unknown]

NARRATIVE: CASE EVENT DATE: 20161113
